FAERS Safety Report 13680407 (Version 1)
Quarter: 2017Q2

REPORT INFORMATION
  Report Type: Report from Study
  Country: None (occurrence: AU)
  Receive Date: 20170622
  Receipt Date: 20170622
  Transmission Date: 20170830
  Serious: Yes (Other)
  Sender: FDA-Public Use
  Company Number: AU-ABBVIE-17P-008-2013011-00

PATIENT
  Sex: Male

DRUGS (1)
  1. LUCRIN DEPOT [Suspect]
     Active Substance: LEUPROLIDE ACETATE
     Indication: PROSTATE CANCER
     Route: 065

REACTIONS (8)
  - Stenosis [Unknown]
  - Pain [Unknown]
  - Spinal disorder [Unknown]
  - Pain in extremity [Unknown]
  - Bone cancer [Unknown]
  - Back pain [Unknown]
  - Arthralgia [Unknown]
  - Hypoaesthesia [Unknown]
